FAERS Safety Report 5800897-4 (Version None)
Quarter: 2008Q3

REPORT INFORMATION
  Report Type: 
  Country: None (occurrence: None)
  Receive Date: 20080701
  Receipt Date: 20080617
  Transmission Date: 20090109
  Serious: No
  Sender: FDA-Public Use
  Company Number: TPG2008A00878

PATIENT
  Age: 68 Year
  Sex: Male

DRUGS (6)
  1. ACTOS [Suspect]
     Indication: DIABETES MELLITUS
     Dosage: 30 MG (30 MG, 1 IN 1 D) PER ORAL
     Route: 048
     Dates: start: 20071029, end: 20071107
  2. MICARDIS (HYDROCHLOROTHIAZIDE, TELMISARTAN) [Concomitant]
  3. CONCOR COR (BISOPROLOL) [Concomitant]
  4. ATORVASTATIN CALCIUM [Concomitant]
  5. EZETROL (EZETIMIBE) [Concomitant]
  6. ACETYLSALICYLIC ACID SRT [Concomitant]

REACTIONS (5)
  - CEREBROVASCULAR DISORDER [None]
  - DELUSIONAL PERCEPTION [None]
  - DEPERSONALISATION [None]
  - DISTURBANCE IN ATTENTION [None]
  - PARAESTHESIA [None]
